FAERS Safety Report 15346915 (Version 1)
Quarter: 2018Q3

REPORT INFORMATION
  Report Type: Spontaneous
  Country: FR (occurrence: FR)
  Receive Date: 20180904
  Receipt Date: 20180904
  Transmission Date: 20181010
  Serious: Yes (Other)
  Sender: FDA-Public Use
  Company Number: FR-MYLANLABS-2018M1065052

PATIENT
  Age: 46 Year
  Sex: Female

DRUGS (1)
  1. CALCITONIN SALMON MYLAN [Suspect]
     Active Substance: CALCITONIN SALMON
     Indication: PRODUCT USED FOR UNKNOWN INDICATION
     Dosage: 50 IU, QD
     Route: 065
     Dates: start: 20160322, end: 20160421

REACTIONS (7)
  - Autoimmune thyroiditis [Unknown]
  - Fatigue [Unknown]
  - Anxiety [Unknown]
  - Asthma [Unknown]
  - Hypertension [Unknown]
  - Hypersensitivity [Unknown]
  - Spinal pain [Unknown]

NARRATIVE: CASE EVENT DATE: 201703
